FAERS Safety Report 18748297 (Version 1)
Quarter: 2021Q1

REPORT INFORMATION
  Report Type: Spontaneous
  Country: TR (occurrence: TR)
  Receive Date: 20210115
  Receipt Date: 20210115
  Transmission Date: 20210419
  Serious: Yes (Life-Threatening)
  Sender: FDA-Public Use
  Company Number: TR-TEVA-2021-TR-1870195

PATIENT
  Age: 58 Year
  Sex: Female
  Weight: 100 kg

DRUGS (3)
  1. CALPINES [CALCIUM GLUCONATE\CALCIUM LEVULINATE] [Suspect]
     Active Substance: CALCIUM GLUCONATE\CALCIUM LEVULINATE
     Dosage: 20 ML DAILY; CALPINES 225 MG+572 MG/10 ML SOLUTION FOR INJECTION
     Route: 042
     Dates: start: 20201211, end: 20201211
  2. TRANSAMINE [Suspect]
     Active Substance: TRANEXAMIC ACID
     Dosage: 2 GRAM DAILY; UNKNOWN FORM STRENGTH
     Route: 042
     Dates: start: 20201211, end: 20201211
  3. SEFAZOL [Suspect]
     Active Substance: CEFAZOLIN SODIUM
     Dosage: 2 GRAM DAILY; SEFAZOL 1 GR
     Route: 042
     Dates: start: 20201211, end: 20201211

REACTIONS (4)
  - Hypotension [Recovering/Resolving]
  - Respiratory depression [Recovering/Resolving]
  - Rash maculo-papular [Recovering/Resolving]
  - Bradycardia [Recovering/Resolving]

NARRATIVE: CASE EVENT DATE: 20201211
